FAERS Safety Report 4947219-9 (Version None)
Quarter: 2006Q1

REPORT INFORMATION
  Report Type: 
  Country: None (occurrence: None)
  Receive Date: 20060313
  Receipt Date: 20060228
  Transmission Date: 20060701
  Serious: Yes (Other)
  Sender: FDA-Public Use
  Company Number: HQWYE105902MAR06

PATIENT
  Age: 63 Year
  Sex: Female
  Weight: 54.48 kg

DRUGS (1)
  1. PREMPRO [Suspect]

REACTIONS (6)
  - BREAST CANCER METASTATIC [None]
  - DEPRESSION [None]
  - EJECTION FRACTION DECREASED [None]
  - METASTASES TO LYMPH NODES [None]
  - OESTROGEN RECEPTOR ASSAY POSITIVE [None]
  - TENDON DISORDER [None]
